FAERS Safety Report 19721529 (Version 1)
Quarter: 2021Q3

REPORT INFORMATION
  Report Type: Spontaneous
  Country: BE (occurrence: BE)
  Receive Date: 20210819
  Receipt Date: 20210819
  Transmission Date: 20211014
  Serious: Yes (Other)
  Sender: FDA-Public Use
  Company Number: BE-PFIZER INC-202100995761

PATIENT
  Sex: Male
  Weight: 58 kg

DRUGS (24)
  1. AZITRO [Suspect]
     Active Substance: AZITHROMYCIN
     Dosage: UNK
  2. MEDROL [Suspect]
     Active Substance: METHYLPREDNISOLONE
     Indication: ASTHMA
     Dosage: 2 MG, ONCE PER DAY
  3. D?CURE [Suspect]
     Active Substance: CHOLECALCIFEROL
     Dosage: UNK
  4. SPIRIVA [Suspect]
     Active Substance: TIOTROPIUM BROMIDE MONOHYDRATE
     Dosage: 2 PUFFS, 1X/DAY
  5. AUGMENTIN [Suspect]
     Active Substance: AMOXICILLIN\CLAVULANATE POTASSIUM
     Dosage: UNK
  6. INFLUENZA VACCINE [Suspect]
     Active Substance: INFLUENZA VIRUS VACCINE
     Indication: IMMUNISATION
     Dosage: UNK
  7. CALCIUM CARBONATE. [Suspect]
     Active Substance: CALCIUM CARBONATE
     Dosage: 1 G, QD
  8. XARELTO [Suspect]
     Active Substance: RIVAROXABAN
     Indication: PULMONARY EMBOLISM
     Dosage: 15 MG, QD
  9. NUCALA [Suspect]
     Active Substance: MEPOLIZUMAB
     Indication: ASTHMA
     Dosage: UNK
     Dates: start: 2019
  10. FLIXOTIDE [Suspect]
     Active Substance: FLUTICASONE PROPIONATE
     Dosage: 2 PUFFS, 2X/DAY250 UG
     Dates: start: 201707
  11. AZITHROMYCIN ANHYDROUS. [Suspect]
     Active Substance: AZITHROMYCIN ANHYDROUS
     Dosage: 500 MG, Z3/WEEK
  12. AMOXICILLIN. [Suspect]
     Active Substance: AMOXICILLIN
     Dosage: UNK
  13. MOMETASONE [Suspect]
     Active Substance: MOMETASONE
     Dosage: 2 PUFFS, 2X/DAY
  14. MEDROL [Suspect]
     Active Substance: METHYLPREDNISOLONE
     Indication: SINUSITIS
     Dosage: UNK, 7 MG/L
  15. PNEUMOCOCCAL 13?VAL CONJ VAC (DIPHT CRM197 PROTEIN) [Suspect]
     Active Substance: PNEUMOCOCCAL 13-VALENT CONJUGATE VACCINE
     Indication: IMMUNISATION
     Dosage: DOSE NUMBER UNKNOWN, SINGLE
  16. AMOXICLAV [Suspect]
     Active Substance: AMOXICILLIN\CLAVULANATE POTASSIUM
     Dosage: 875 MG, QD 875 MG, Z 3 DAYS
  17. MONTELUKAST EG [Suspect]
     Active Substance: MONTELUKAST SODIUM
     Dosage: 10 MG, QD
  18. ASAFLOW [Suspect]
     Active Substance: ASPIRIN
     Dosage: UNK
  19. NUCALA [Suspect]
     Active Substance: MEPOLIZUMAB
     Dosage: 100 MG, Z EVERY 4 WEEKS
     Route: 058
     Dates: start: 20171013
  20. DUOVENT [Suspect]
     Active Substance: FENOTEROL HYDROBROMIDE
     Indication: DYSPNOEA
     Dosage: 2 PUFFS, 2X/DAY
  21. MEDROL [Suspect]
     Active Substance: METHYLPREDNISOLONE
     Dosage: UNK UNK, 1X/DAY, 4 MG/L
     Dates: start: 202010
  22. RELVAR ELLIPTA [Suspect]
     Active Substance: FLUTICASONE FUROATE\VILANTEROL TRIFENATATE
     Dosage: 1 PUFF, 1X/DAY
  23. FRAXODI [Suspect]
     Active Substance: NADROPARIN CALCIUM
     Dosage: UNK
  24. ACETYLCYSTEINE. [Suspect]
     Active Substance: ACETYLCYSTEINE
     Indication: SPUTUM RETENTION
     Dosage: 600 MG

REACTIONS (18)
  - Neutrophil count abnormal [Unknown]
  - Bacterial infection [Unknown]
  - Pulmonary embolism [Unknown]
  - Chronic sinusitis [Unknown]
  - Condition aggravated [Unknown]
  - Dyspnoea [Unknown]
  - Cough [Unknown]
  - Disease recurrence [Unknown]
  - Asthma [Unknown]
  - Renal colic [Unknown]
  - Drug ineffective [Unknown]
  - Staphylococcal infection [Unknown]
  - Productive cough [Unknown]
  - Bronchiectasis [Unknown]
  - Sputum purulent [Unknown]
  - Haematoma [Unknown]
  - Pain [Unknown]
  - Upper-airway cough syndrome [Unknown]

NARRATIVE: CASE EVENT DATE: 201705
